FAERS Safety Report 5332983-X (Version None)
Quarter: 2007Q2

REPORT INFORMATION
  Report Type: 
  Country: None (occurrence: None)
  Receive Date: 20070306
  Receipt Date: 20060214
  Transmission Date: 20071010
  Serious: Yes (Hospitalization)
  Sender: FDA-Public Use
  Company Number: A03200501825

PATIENT
  Age: 64 Year
  Sex: Female
  Weight: 52.1637 kg

DRUGS (6)
  1. PLAVIX [Suspect]
     Indication: ANGIOGRAM
     Dosage: 75 MG QD - ORAL
     Route: 048
     Dates: start: 20050329, end: 20051228
  2. PLAVIX [Suspect]
     Indication: ANGIOPLASTY
     Dosage: 75 MG QD - ORAL
     Route: 048
     Dates: start: 20050329, end: 20051228
  3. PLAVIX [Suspect]
     Indication: STENT PLACEMENT
     Dosage: 75 MG QD - ORAL
     Route: 048
     Dates: start: 20050329, end: 20051228
  4. ASPIRIN [Suspect]
     Indication: STENT PLACEMENT
     Dosage: 81 MG QD - ORAL
     Route: 048
     Dates: start: 20050329
  5. TOPROL-XL [Suspect]
     Dosage: ORAL
     Route: 048
     Dates: start: 20050329, end: 20050101
  6. ATORVASTATIN [Concomitant]

REACTIONS (7)
  - CONSTIPATION [None]
  - HAEMATOMA [None]
  - HAEMORRHAGE [None]
  - HAEMORRHAGIC ANAEMIA [None]
  - INTESTINAL HAEMORRHAGE [None]
  - OCULAR HYPERAEMIA [None]
  - POST PROCEDURAL HAEMORRHAGE [None]
